FAERS Safety Report 7810944-6 (Version None)
Quarter: 2011Q4

REPORT INFORMATION
  Report Type: 
  Country: None (occurrence: None)
  Receive Date: 20111013
  Receipt Date: 20111003
  Transmission Date: 20120403
  Serious: No
  Sender: FDA-Public Use
  Company Number: US-PFIZER INC-2011237425

PATIENT
  Age: 35 Year
  Sex: Female
  Weight: 81.6 kg

DRUGS (1)
  1. LO/OVRAL [Suspect]
     Indication: ORAL CONTRACEPTION
     Dosage: UNK
     Dates: start: 20070701, end: 20080901

REACTIONS (4)
  - MENSTRUATION IRREGULAR [None]
  - HEADACHE [None]
  - NAUSEA [None]
  - DYSMENORRHOEA [None]
